FAERS Safety Report 6596879-8 (Version None)
Quarter: 2010Q1

REPORT INFORMATION
  Report Type: 
  Country: None (occurrence: None)
  Receive Date: 20100222
  Receipt Date: 20100222
  Transmission Date: 20100710
  Serious: Yes (Life-Threatening, Hospitalization, Disabling, Other)
  Sender: FDA-Public Use
  Company Number: None

PATIENT
  Age: 61 Year
  Weight: 99.7913 kg

DRUGS (2)
  1. AMIODARONE HCL [Suspect]
     Indication: HEART RATE INCREASED
     Dates: start: 20090813, end: 20091001
  2. DILTIAZEM HCL [Suspect]

REACTIONS (1)
  - NO ADVERSE EVENT [None]
